FAERS Safety Report 21067595 (Version 1)
Quarter: 2022Q3

REPORT INFORMATION
  Report Type: Report from Study
  Country: CZ (occurrence: CZ)
  Receive Date: 20220712
  Receipt Date: 20220712
  Transmission Date: 20221027
  Serious: Yes (Hospitalization, Other)
  Sender: FDA-Public Use
  Company Number: CZ-UCBSA-2022038123

PATIENT
  Age: 70 Year
  Sex: Male

DRUGS (1)
  1. CERTOLIZUMAB PEGOL [Suspect]
     Active Substance: CERTOLIZUMAB PEGOL
     Indication: Rheumatoid arthritis
     Dosage: 200 MILLIGRAM, EV 2 WEEKS(QOW)
     Dates: start: 20160922

REACTIONS (4)
  - Acute myocardial infarction [Recovering/Resolving]
  - Angioplasty [Recovering/Resolving]
  - Peripheral artery occlusion [Recovering/Resolving]
  - Catheter placement [Recovering/Resolving]

NARRATIVE: CASE EVENT DATE: 20220501
